FAERS Safety Report 24388710 (Version 1)
Quarter: 2024Q4

REPORT INFORMATION
  Report Type: Spontaneous
  Country: US (occurrence: None)
  Receive Date: 20241001
  Receipt Date: 20241001
  Transmission Date: 20250115
  Serious: Yes (Disabling, Other)
  Sender: Public
  Company Number: None

PATIENT
  Age: 48 Year
  Sex: Female
  Weight: 72 kg

DRUGS (1)
  1. SEMAGLUTIDE [Suspect]
     Active Substance: SEMAGLUTIDE
     Indication: Weight decreased
     Dosage: OTHER FREQUENCY : ONCE PER WEEK;?OTHER ROUTE : SUBCUTANEOUS INJECTION OR 1 ML , WEEKLY;?
     Route: 050
     Dates: start: 20240824, end: 20240925

REACTIONS (9)
  - Incorrect dose administered [None]
  - Product dispensing error [None]
  - Incorrect dose administered [None]
  - Tremor [None]
  - Blood glucose decreased [None]
  - Nausea [None]
  - Food intolerance [None]
  - Inability to afford medication [None]
  - Product preparation error [None]

NARRATIVE: CASE EVENT DATE: 20240921
